FAERS Safety Report 12998751 (Version 4)
Quarter: 2017Q2

REPORT INFORMATION
  Report Type: Report from Study
  Country: KR (occurrence: KR)
  Receive Date: 20161205
  Receipt Date: 20170404
  Transmission Date: 20170830
  Serious: Yes (Hospitalization)
  Sender: FDA-Public Use
  Company Number: KR-ROCHE-1859170

PATIENT
  Age: 69 Year
  Sex: Female
  Weight: 40 kg

DRUGS (34)
  1. LEUCOVORIN. [Suspect]
     Active Substance: LEUCOVORIN
     Indication: ADENOCARCINOMA GASTRIC
     Dosage: MOST RECENT DOSE PRIOR TO AE ONSET: 262 MG ON 15/NOV/2016
     Route: 042
     Dates: start: 20161004
  2. CEFTRIAXONE. [Concomitant]
     Active Substance: CEFTRIAXONE
     Indication: PROPHYLAXIS
     Route: 042
     Dates: start: 20161128, end: 20161130
  3. NORZYME [Concomitant]
     Indication: PROPHYLAXIS
     Route: 048
     Dates: start: 20161202, end: 20161210
  4. NEURONTIN (SOUTH KOREA) [Concomitant]
     Indication: NEUROPATHY PERIPHERAL
     Route: 048
     Dates: start: 20161202
  5. MUCOSTA [Concomitant]
     Active Substance: REBAMIPIDE
     Indication: PROPHYLAXIS
     Route: 048
     Dates: start: 20161207
  6. LANSTON [Concomitant]
     Active Substance: LANSOPRAZOLE
     Indication: PROPHYLAXIS
     Route: 048
     Dates: start: 20161207
  7. PYRAZINAMIDE. [Concomitant]
     Active Substance: PYRAZINAMIDE
     Indication: PROPHYLAXIS
     Route: 048
     Dates: start: 20161213, end: 20161213
  8. NASERON [Concomitant]
     Indication: NAUSEA
     Route: 042
     Dates: start: 20160920
  9. JURNISTA IR [Concomitant]
     Indication: PROPHYLAXIS
     Route: 048
     Dates: start: 20161122
  10. LEGALON [Concomitant]
     Active Substance: MILK THISTLE
     Indication: PROPHYLAXIS
     Route: 048
     Dates: start: 20161129
  11. TYLENOL [Concomitant]
     Active Substance: ACETAMINOPHEN
     Indication: PROPHYLAXIS
     Route: 048
     Dates: start: 20161019, end: 20161129
  12. TRIDOL [Concomitant]
     Active Substance: TRAMADOL HYDROCHLORIDE
     Indication: PROPHYLAXIS
     Route: 042
     Dates: start: 20161117, end: 20161207
  13. TAZOPERAN [Concomitant]
     Indication: PROPHYLAXIS
     Dosage: 300 OTHER
     Route: 042
     Dates: start: 20161030, end: 20161205
  14. PYRIDOXINE [Concomitant]
     Active Substance: PYRIDOXINE
     Indication: PROPHYLAXIS
     Route: 048
     Dates: start: 20161202
  15. YUHANZID [Concomitant]
     Active Substance: ISONIAZID
     Indication: PROPHYLAXIS
     Route: 048
     Dates: start: 20161213, end: 20161213
  16. OXALIPLATIN. [Suspect]
     Active Substance: OXALIPLATIN
     Indication: ADENOCARCINOMA GASTRIC
     Dosage: MOST RECENT DOSE ADMINISTERED PRIOR TO AE ONSET: 111MG ON 15/NOV/2016
     Route: 042
     Dates: start: 20161004
  17. 5-FLUOROURACIL [Suspect]
     Active Substance: FLUOROURACIL
     Indication: ADENOCARCINOMA GASTRIC
     Dosage: MOST RECENT DOSE PRIOR TO AE ONSET: 3144 MG ON 15/NOV/2016?400 MG/M2 BOLUS + 2400 MG/M2 INFUSION
     Route: 042
     Dates: start: 20161004
  18. MAGNESIUM OXIDE. [Concomitant]
     Active Substance: MAGNESIUM OXIDE
     Indication: CONSTIPATION
     Route: 048
  19. NASEA [Concomitant]
     Active Substance: RAMOSETRON HYDROCHLORIDE
     Route: 042
     Dates: start: 20161102
  20. URSA [Concomitant]
     Indication: PROPHYLAXIS
     Route: 048
     Dates: start: 20161103
  21. RIFAMPIN. [Concomitant]
     Active Substance: RIFAMPIN
     Indication: PROPHYLAXIS
     Route: 048
     Dates: start: 20161213, end: 20161213
  22. MOTILITONE [Concomitant]
     Active Substance: HERBALS
     Indication: PROPHYLAXIS
     Route: 048
     Dates: start: 20161124
  23. TRAJENTA [Concomitant]
     Active Substance: LINAGLIPTIN
     Indication: DIABETES MELLITUS
     Route: 048
     Dates: start: 20161210
  24. TANTUM (BENZYDAMINE HYDROCHLORIDE) [Concomitant]
     Indication: PROPHYLAXIS
     Route: 065
     Dates: start: 20161004
  25. DULCOLAX-S [Concomitant]
     Indication: CONSTIPATION
     Route: 048
     Dates: start: 20161201, end: 20161201
  26. ATEZOLIZUMAB [Suspect]
     Active Substance: ATEZOLIZUMAB
     Indication: ADENOCARCINOMA GASTRIC
     Dosage: MOST RECENT DOSE ADMINISTERED PRIOR TO AE ONSET: 15/NOV/2016
     Route: 042
     Dates: start: 20161004
  27. BEVACIZUMAB [Suspect]
     Active Substance: BEVACIZUMAB
     Indication: ADENOCARCINOMA GASTRIC
     Dosage: MOST RECENT DOSE PRIOR TO AE ONSET: 430MG ON 15/NOV/2016
     Route: 042
     Dates: start: 20161004
  28. GRASIN [Concomitant]
     Indication: NEUTROPENIA
     Dosage: 300 OTHER
     Route: 058
     Dates: start: 20161130, end: 20161130
  29. LASIX [Concomitant]
     Active Substance: FUROSEMIDE
     Indication: PROPHYLAXIS
     Route: 042
     Dates: start: 20161017
  30. NASEA [Concomitant]
     Active Substance: RAMOSETRON HYDROCHLORIDE
     Indication: NAUSEA
     Route: 048
     Dates: start: 20161102
  31. TARGIN RETARD [Concomitant]
     Indication: ABDOMINAL PAIN
     Route: 048
     Dates: start: 20161124
  32. ADELAVIN [Concomitant]
     Indication: PROPHYLAXIS
     Route: 042
     Dates: start: 20161122, end: 20161130
  33. CURAN [Concomitant]
     Active Substance: RANITIDINE HYDROCHLORIDE
     Indication: PROPHYLAXIS
     Route: 048
     Dates: start: 20161205, end: 20161207
  34. CURAN [Concomitant]
     Active Substance: RANITIDINE HYDROCHLORIDE
     Route: 042
     Dates: start: 20161211, end: 20161211

REACTIONS (1)
  - Pulmonary tuberculosis [Recovered/Resolved]

NARRATIVE: CASE EVENT DATE: 20161120
